FAERS Safety Report 19769244 (Version 3)
Quarter: 2022Q3

REPORT INFORMATION
  Report Type: Report from Study
  Country: US (occurrence: US)
  Receive Date: 20210831
  Receipt Date: 20220913
  Transmission Date: 20221027
  Serious: No
  Sender: FDA-Public Use
  Company Number: NVSC2021US196290

PATIENT
  Sex: Female

DRUGS (1)
  1. PROMACTA [Suspect]
     Active Substance: ELTROMBOPAG OLAMINE
     Indication: Thrombocytopenic purpura
     Dosage: UNK (PRESCRIBED PROMACTA FOR 2 WEEKS)
     Route: 065

REACTIONS (2)
  - Diarrhoea [Recovering/Resolving]
  - Hypoacusis [Unknown]
